FAERS Safety Report 6202413-4 (Version None)
Quarter: 2009Q2

REPORT INFORMATION
  Report Type: 
  Country: None (occurrence: None)
  Receive Date: 20090521
  Receipt Date: 20090521
  Transmission Date: 20091009
  Serious: No
  Sender: FDA-Public Use
  Company Number: None

PATIENT
  Sex: Female
  Weight: 44.4525 kg

DRUGS (1)
  1. LEVOTHYROXINE SODIUM [Suspect]
     Indication: HYPOTHYROIDISM
     Dosage: 1 TABLET DAILY MOUTH
     Route: 048
     Dates: start: 20080314

REACTIONS (5)
  - CERUMEN IMPACTION [None]
  - DEAFNESS UNILATERAL [None]
  - PAIN [None]
  - PRURITUS [None]
  - TINNITUS [None]
